FAERS Safety Report 7298800-6 (Version None)
Quarter: 2011Q1

REPORT INFORMATION
  Report Type: 
  Country: None (occurrence: None)
  Receive Date: 20110209
  Receipt Date: 20110124
  Transmission Date: 20110831
  Serious: Yes (Hospitalization, Other)
  Sender: FDA-Public Use
  Company Number: 2011MA000613

PATIENT
  Age: 48 Year
  Sex: Female

DRUGS (3)
  1. PYRAZINAMIDE [Concomitant]
  2. ISONIAZID [Concomitant]
  3. RIFAMPIN [Suspect]
     Indication: PLEURISY
     Dosage: PO
     Route: 048

REACTIONS (13)
  - AMMONIA INCREASED [None]
  - HEPATOTOXICITY [None]
  - HEPATIC ENCEPHALOPATHY [None]
  - MICROCYTIC ANAEMIA [None]
  - ACTIVATED PARTIAL THROMBOPLASTIN TIME PROLONGED [None]
  - LIVER TRANSPLANT [None]
  - TUBERCULOSIS LIVER [None]
  - SUBACUTE HEPATIC FAILURE [None]
  - COAGULATION FACTOR V LEVEL DECREASED [None]
  - HEPATIC NECROSIS [None]
  - INTERNATIONAL NORMALISED RATIO INCREASED [None]
  - LEUKOPENIA [None]
  - THROMBOCYTOSIS [None]
